FAERS Safety Report 8557743-8 (Version None)
Quarter: 2012Q3

REPORT INFORMATION
  Report Type: 
  Country: None (occurrence: None)
  Receive Date: 20120801
  Receipt Date: 20070226
  Transmission Date: 20120928
  Serious: Yes (Other)
  Sender: FDA-Public Use
  Company Number: CO-PFIZER INC-2012184818

PATIENT
  Age: 41 Year
  Sex: Female

DRUGS (4)
  1. LIPITOR [Suspect]
     Indication: DYSLIPIDAEMIA
     Dosage: 10 MG, 1X/DAY
  2. OLMESARTAN MEDOXOMIL AND HYDROCHLOROTHIZIDE [Suspect]
     Indication: HYPERTENSION
     Dosage: OLMESARTAN/HYDROCHLOROTHIAZIDE 20/12.5 MG 1X/DAY
  3. QUINAPRIL AND HYDROCHLOROTHIAZIDE [Suspect]
     Indication: HYPERTENSION
     Dosage: QUINAPRIL/HYDROCHLOROTHIAZIDE 20/12.5 MG 1X/DAY
  4. INSULIN ZINC SUSPENSION [Concomitant]
     Dosage: 28 UI IN THE AM, 16 UI  IN THE PM

REACTIONS (3)
  - CHEST PAIN [None]
  - HAEMATURIA [None]
  - HYPERTENSIVE EMERGENCY [None]
